FAERS Safety Report 14453636 (Version 1)
Quarter: 2018Q1

REPORT INFORMATION
  Report Type: Spontaneous
  Country: SG (occurrence: SG)
  Receive Date: 20180129
  Receipt Date: 20180129
  Transmission Date: 20180509
  Serious: Yes (Other)
  Sender: FDA-Public Use
  Company Number: SG-EDENBRIDGE PHARMACEUTICALS, LLC-SG-2018EDE000014

PATIENT
  Age: 32 Year
  Sex: Male

DRUGS (1)
  1. PREDNISOLONE SODIUM PHOSPHATE. [Suspect]
     Active Substance: PREDNISOLONE SODIUM PHOSPHATE
     Indication: OPTIC NEURITIS
     Dosage: 80 MG, QD
     Route: 048

REACTIONS (2)
  - Necrotising retinitis [Unknown]
  - Herpes simplex [Unknown]
